FAERS Safety Report 9443091 (Version 1)
Quarter: 2013Q3

REPORT INFORMATION
  Report Type: Spontaneous
  Country: BE (occurrence: BE)
  Receive Date: 20130806
  Receipt Date: 20130806
  Transmission Date: 20140515
  Serious: Yes (Other)
  Sender: FDA-Public Use
  Company Number: PHHY2012BE102173

PATIENT
  Age: 23 Year
  Sex: Female
  Weight: 65 kg

DRUGS (2)
  1. LAMISIL [Suspect]
     Indication: ONYCHOMYCOSIS
     Dosage: 250 MG
     Route: 048
     Dates: start: 201208, end: 20121031
  2. GESTODELLE [Interacting]
     Dosage: ETHINYLESTRADIOL 0.02MG/GESTODENE 0.075MG

REACTIONS (6)
  - Drug interaction [Not Recovered/Not Resolved]
  - Heart rate increased [Unknown]
  - Blood pressure increased [Unknown]
  - Maternal exposure during pregnancy [Unknown]
  - Labour pain [Unknown]
  - Normal newborn [Unknown]
